FAERS Safety Report 10400826 (Version 1)
Quarter: 2014Q3

REPORT INFORMATION
  Report Type: Spontaneous
  Country: US (occurrence: US)
  Receive Date: 20140821
  Receipt Date: 20140821
  Transmission Date: 20150326
  Serious: No
  Sender: FDA-Public Use
  Company Number: US-ASTRAZENECA-2014SE33192

PATIENT
  Age: 16 Year
  Sex: Female
  Weight: 50.3 kg

DRUGS (4)
  1. SYMBICORT [Suspect]
     Active Substance: BUDESONIDE\FORMOTEROL FUMARATE DIHYDRATE
     Indication: ASTHMA
     Dosage: TWO PUFF, HS
     Route: 055
  2. SYMBICORT [Suspect]
     Active Substance: BUDESONIDE\FORMOTEROL FUMARATE DIHYDRATE
     Indication: ASTHMA
     Dosage: 80/4.5 TWO PUFFS, BID
     Route: 055
  3. CLARITIN [Concomitant]
     Active Substance: LORATADINE
     Dosage: NR PRN
  4. ACNE MEDICINE [Concomitant]
     Indication: ACNE

REACTIONS (2)
  - Dizziness [Recovered/Resolved]
  - Pallor [Recovered/Resolved]
